FAERS Safety Report 16364182 (Version 1)
Quarter: 2019Q2

REPORT INFORMATION
  Report Type: Spontaneous
  Country: CA (occurrence: CA)
  Receive Date: 20190528
  Receipt Date: 20190528
  Transmission Date: 20190711
  Serious: Yes (Other)
  Sender: FDA-Public Use
  Company Number: PHHY2019CA120293

PATIENT

DRUGS (2)
  1. PROPRANOLOL [Suspect]
     Active Substance: PROPRANOLOL HYDROCHLORIDE
     Indication: HYPERTROPHIC CARDIOMYOPATHY
     Dosage: 9 MG/KG, QD
     Route: 065
  2. TRAMETINIB [Suspect]
     Active Substance: TRAMETINIB
     Indication: HYPERTROPHIC CARDIOMYOPATHY
     Dosage: 0.025 MG/KG, QD (14 AND 13 WEEKS OF AGE)
     Route: 065

REACTIONS (7)
  - Hypertrophic cardiomyopathy [Recovering/Resolving]
  - Dermatitis acneiform [Unknown]
  - Right ventricle outflow tract obstruction [Unknown]
  - Pulmonary oedema [Unknown]
  - Left ventricle outflow tract obstruction [Unknown]
  - Product use in unapproved indication [Unknown]
  - Disease progression [Recovering/Resolving]
